FAERS Safety Report 23614027 (Version 1)
Quarter: 2024Q1

REPORT INFORMATION
  Report Type: Spontaneous
  Country: GB (occurrence: GB)
  Receive Date: 20240310
  Receipt Date: 20240310
  Transmission Date: 20240409
  Serious: Yes (Life-Threatening, Other)
  Sender: FDA-Public Use
  Company Number: GB-PRINSTON PHARMACEUTICAL INC.-2024PRN00103

PATIENT
  Sex: Male

DRUGS (3)
  1. BISOPROLOL FUMARATE [Suspect]
     Active Substance: BISOPROLOL FUMARATE
     Indication: Heart rate increased
  2. UNSPECIFIED INGREDIENT [Concomitant]
     Active Substance: UNSPECIFIED INGREDIENT
  3. INTRAVENOUS FLUIDS [Concomitant]
     Route: 042

REACTIONS (2)
  - Haemodynamic instability [Recovered/Resolved]
  - Electrocardiogram QRS complex prolonged [Recovered/Resolved]
